FAERS Safety Report 5422458-1 (Version None)
Quarter: 2007Q3

REPORT INFORMATION
  Report Type: 
  Country: None (occurrence: None)
  Receive Date: 20070822
  Receipt Date: 20070802
  Transmission Date: 20080115
  Serious: Yes (Hospitalization)
  Sender: FDA-Public Use
  Company Number: JP-ASTRAZENECA-2007AP04738

PATIENT
  Age: 4 Year
  Sex: Female
  Weight: 19.2 kg

DRUGS (59)
  1. PULMICORT [Suspect]
     Indication: ASTHMA
     Route: 055
     Dates: start: 20070119
  2. ONON DRYSYRUP [Concomitant]
     Indication: ASTHMA
     Route: 048
     Dates: start: 20051206, end: 20070329
  3. ONON DRYSYRUP [Concomitant]
     Route: 048
     Dates: start: 20070530, end: 20070605
  4. ONON DRYSYRUP [Concomitant]
     Route: 048
     Dates: start: 20070624, end: 20070628
  5. ZITHROMAC [Concomitant]
     Indication: BRONCHITIS
     Route: 048
     Dates: start: 20070120, end: 20070122
  6. MEPTIN [Concomitant]
     Indication: ASTHMA
     Route: 055
     Dates: start: 20070120, end: 20070125
  7. MEPTIN [Concomitant]
     Route: 055
     Dates: start: 20070530, end: 20070530
  8. MEPTIN [Concomitant]
     Route: 055
  9. INTAL [Concomitant]
     Indication: ASTHMA
     Route: 055
     Dates: start: 20070120, end: 20070125
  10. INTAL [Concomitant]
     Route: 055
     Dates: start: 20070427, end: 20070427
  11. ASTOMIN [Concomitant]
     Indication: BRONCHITIS
     Route: 048
     Dates: start: 20070120, end: 20070202
  12. ASTOMIN [Concomitant]
     Indication: UPPER RESPIRATORY TRACT INFLAMMATION
     Route: 048
     Dates: start: 20070120, end: 20070202
  13. ASTOMIN [Concomitant]
     Route: 048
     Dates: start: 20070401, end: 20070404
  14. ASTOMIN [Concomitant]
     Route: 048
     Dates: start: 20070401, end: 20070404
  15. ASTOMIN [Concomitant]
     Route: 048
     Dates: start: 20070510, end: 20070516
  16. ASTOMIN [Concomitant]
     Route: 048
     Dates: start: 20070510, end: 20070516
  17. ASTOMIN [Concomitant]
     Route: 048
     Dates: start: 20070530, end: 20070605
  18. ASTOMIN [Concomitant]
     Route: 048
     Dates: start: 20070530, end: 20070605
  19. ASTOMIN [Concomitant]
     Route: 048
     Dates: start: 20070624, end: 20070628
  20. ASTOMIN [Concomitant]
     Route: 048
     Dates: start: 20070624, end: 20070628
  21. ASTOMIN [Concomitant]
     Route: 048
     Dates: start: 20070723, end: 20070729
  22. ASTOMIN [Concomitant]
     Route: 048
     Dates: start: 20070723, end: 20070729
  23. XEBLEN [Concomitant]
     Indication: ASTHMA
     Route: 048
     Dates: start: 20070120, end: 20070202
  24. XEBLEN [Concomitant]
     Indication: RHINITIS
     Route: 048
     Dates: start: 20070120, end: 20070202
  25. XEBLEN [Concomitant]
     Route: 048
     Dates: start: 20070401, end: 20070404
  26. XEBLEN [Concomitant]
     Route: 048
     Dates: start: 20070401, end: 20070404
  27. XEBLEN [Concomitant]
     Route: 048
     Dates: start: 20070510, end: 20070516
  28. XEBLEN [Concomitant]
     Route: 048
     Dates: start: 20070510, end: 20070516
  29. XEBLEN [Concomitant]
     Route: 048
     Dates: start: 20070530, end: 20070605
  30. XEBLEN [Concomitant]
     Route: 048
     Dates: start: 20070530, end: 20070605
  31. XEBLEN [Concomitant]
     Route: 048
     Dates: start: 20070624, end: 20070628
  32. XEBLEN [Concomitant]
     Route: 048
     Dates: start: 20070624, end: 20070628
  33. XEBLEN [Concomitant]
     Route: 048
     Dates: start: 20070723, end: 20070729
  34. XEBLEN [Concomitant]
     Route: 048
     Dates: start: 20070723, end: 20070729
  35. MEPTIN [Concomitant]
     Indication: BRONCHITIS
     Route: 048
     Dates: start: 20070120, end: 20070202
  36. MEPTIN [Concomitant]
     Route: 048
     Dates: start: 20070120, end: 20070202
  37. MEPTIN [Concomitant]
     Route: 048
     Dates: start: 20070401, end: 20070404
  38. MEPTIN [Concomitant]
     Route: 048
     Dates: start: 20070401, end: 20070404
  39. MEPTIN [Concomitant]
     Route: 048
     Dates: start: 20070502, end: 20070508
  40. MEPTIN [Concomitant]
     Route: 048
     Dates: start: 20070502, end: 20070508
  41. MEPTIN [Concomitant]
     Route: 048
     Dates: start: 20070510, end: 20070516
  42. MEPTIN [Concomitant]
     Route: 048
     Dates: start: 20070510, end: 20070516
  43. MEPTIN [Concomitant]
     Route: 048
     Dates: start: 20070530, end: 20070605
  44. MEPTIN [Concomitant]
     Route: 048
     Dates: start: 20070530, end: 20070605
  45. MEPTIN [Concomitant]
     Route: 048
     Dates: start: 20070624, end: 20070628
  46. MEPTIN [Concomitant]
     Route: 048
     Dates: start: 20070624, end: 20070628
  47. MEPTIN [Concomitant]
     Route: 048
     Dates: start: 20070723, end: 20070729
  48. MEPTIN [Concomitant]
     Route: 048
     Dates: start: 20070723, end: 20070729
  49. MEIACT [Concomitant]
     Indication: UPPER RESPIRATORY TRACT INFLAMMATION
     Route: 048
     Dates: start: 20070315, end: 20070321
  50. MEIACT [Concomitant]
     Route: 048
     Dates: start: 20070401, end: 20070404
  51. BIOFERMIN R [Concomitant]
     Indication: UPPER RESPIRATORY TRACT INFLAMMATION
     Route: 048
     Dates: start: 20070315, end: 20070321
  52. BIOFERMIN R [Concomitant]
     Route: 048
     Dates: start: 20070401, end: 20070404
  53. BIOFERMIN R [Concomitant]
     Route: 048
     Dates: start: 20070502, end: 20070508
  54. ATMIPHEN [Concomitant]
     Indication: UPPER RESPIRATORY TRACT INFLAMMATION
     Route: 048
     Dates: start: 20070401, end: 20070404
  55. CEFZON [Concomitant]
     Indication: BRONCHITIS
     Route: 048
     Dates: start: 20070502, end: 20070508
  56. MUCOSOLVAN [Concomitant]
     Indication: BRONCHITIS
     Route: 048
     Dates: start: 20070502, end: 20070508
  57. MUCODYNE [Concomitant]
     Indication: BRONCHITIS
     Dates: start: 20070502, end: 20070508
  58. CLARITHROMYCIN [Concomitant]
     Indication: BRONCHITIS
     Route: 048
     Dates: start: 20070510, end: 20070516
  59. CLARITH:DRYSYRUP [Concomitant]
     Indication: BRONCHITIS
     Route: 048
     Dates: start: 20070624, end: 20070628

REACTIONS (1)
  - ASTHMA [None]
